FAERS Safety Report 20611513 (Version 5)
Quarter: 2024Q4

REPORT INFORMATION
  Report Type: Report from Study
  Country: DE (occurrence: DE)
  Receive Date: 20220318
  Receipt Date: 20241217
  Transmission Date: 20250115
  Serious: Yes (Other)
  Sender: BIOCON
  Company Number: DE-MYLANLABS-2021M1065015

PATIENT

DRUGS (5)
  1. HULIO [Suspect]
     Active Substance: ADALIMUMAB-FKJP
     Indication: Axial spondyloarthritis
     Dosage: 40 MG, Q2W
     Route: 065
     Dates: start: 20191203, end: 20210430
  2. IBUPROFEN [Suspect]
     Active Substance: IBUPROFEN
     Indication: Product used for unknown indication
     Dosage: 800.00MG 2 DAYS A WEEK
     Route: 065
     Dates: start: 20080905, end: 20210430
  3. IBUPROFEN [Suspect]
     Active Substance: IBUPROFEN
     Dosage: 800.00MG 1 DAYS A WEEK, 01-JAN-2022 00:00
     Route: 065
  4. CIMZIA [Suspect]
     Active Substance: CERTOLIZUMAB PEGOL
     Indication: Product used for unknown indication
     Dosage: 200 MILLIGRAM, Q2W
     Route: 065
     Dates: start: 20210729
  5. LEVOTHYROXINE SODIUM [Concomitant]
     Active Substance: LEVOTHYROXINE SODIUM
     Indication: Product used for unknown indication
     Dosage: UNK
     Route: 065

REACTIONS (2)
  - Maternal exposure during pregnancy [Recovered/Resolved]
  - Live birth [Recovered/Resolved]

NARRATIVE: CASE EVENT DATE: 20210301
